FAERS Safety Report 25222621 (Version 1)
Quarter: 2025Q2

REPORT INFORMATION
  Report Type: Report from Study
  Country: GB (occurrence: GB)
  Receive Date: 20250421
  Receipt Date: 20250421
  Transmission Date: 20250716
  Serious: Yes (Other)
  Sender: AMGEN
  Company Number: GB-002147023-NVSC2025GB064050

PATIENT
  Sex: Female

DRUGS (1)
  1. AIMOVIG [Suspect]
     Active Substance: ERENUMAB-AOOE
     Indication: Migraine
     Dosage: 140 MG, Q4W
     Route: 058

REACTIONS (7)
  - Seizure [Unknown]
  - Epiphyseal disorder [Unknown]
  - Bone disorder [Unknown]
  - Vision blurred [Unknown]
  - Product dose omission in error [Unknown]
  - Memory impairment [Unknown]
  - Emotional distress [Unknown]
